FAERS Safety Report 8445912-7 (Version None)
Quarter: 2012Q2

REPORT INFORMATION
  Report Type: 
  Country: None (occurrence: None)
  Receive Date: 20120618
  Receipt Date: 20120611
  Transmission Date: 20120825
  Serious: Yes (Other)
  Sender: FDA-Public Use
  Company Number: GB-ABBOTT-12P-167-0898283-00

PATIENT
  Sex: Male

DRUGS (3)
  1. HUMIRA [Suspect]
     Indication: ARTHRITIS
     Dates: start: 20110301
  2. HUMIRA [Suspect]
     Indication: PSORIASIS
     Route: 058
     Dates: start: 20070301
  3. HUMIRA [Suspect]
     Dates: start: 20120120

REACTIONS (7)
  - ERYTHEMA [None]
  - CELLULITIS [None]
  - PNEUMONIA [None]
  - OEDEMA PERIPHERAL [None]
  - VOMITING [None]
  - COUGH [None]
  - MALAISE [None]
